FAERS Safety Report 18929474 (Version 1)
Quarter: 2021Q1

REPORT INFORMATION
  Report Type: Spontaneous
  Country: CA (occurrence: CA)
  Receive Date: 20210223
  Receipt Date: 20210223
  Transmission Date: 20210420
  Serious: Yes (Other)
  Sender: FDA-Public Use
  Company Number: CA-TAKEDA-2020TUS049968

PATIENT
  Age: 45 Year
  Sex: Female

DRUGS (11)
  1. BENADRYL [Concomitant]
     Active Substance: DIPHENHYDRAMINE HYDROCHLORIDE
  2. LOVENOX [LEVOFLOXACIN] [Concomitant]
     Active Substance: LEVOFLOXACIN
  3. KEPPRA [Concomitant]
     Active Substance: LEVETIRACETAM
  4. FENTANYL. [Concomitant]
     Active Substance: FENTANYL
  5. HUMAN NORMAL IMMUNOGLOBULIN [Suspect]
     Active Substance: HUMAN IMMUNOGLOBULIN G
     Indication: ENCEPHALITIS AUTOIMMUNE
     Dosage: 30 GRAM, 5/WEEK
     Route: 042
     Dates: start: 20200806
  6. LAMOTRIGINE. [Concomitant]
     Active Substance: LAMOTRIGINE
  7. TYLENOL [Concomitant]
     Active Substance: ACETAMINOPHEN
  8. DILANTIN [Concomitant]
     Active Substance: PHENYTOIN
  9. KETAMINE [Concomitant]
     Active Substance: KETAMINE
  10. PROPOFOL. [Concomitant]
     Active Substance: PROPOFOL
  11. VERSED [Concomitant]
     Active Substance: MIDAZOLAM HYDROCHLORIDE

REACTIONS (6)
  - Tachypnoea [Unknown]
  - Chills [Unknown]
  - Hypertension [Unknown]
  - Tachycardia [Unknown]
  - Pyrexia [Unknown]
  - Pneumonia [Recovered/Resolved with Sequelae]

NARRATIVE: CASE EVENT DATE: 20200806
